FAERS Safety Report 8274998-8 (Version None)
Quarter: 2012Q2

REPORT INFORMATION
  Report Type: 
  Country: None (occurrence: None)
  Receive Date: 20120411
  Receipt Date: 20120406
  Transmission Date: 20120825
  Serious: Yes (Death, Hospitalization)
  Sender: FDA-Public Use
  Company Number: US-CELGENEUS-163-21880-11100616

PATIENT
  Sex: Female
  Weight: 65.8 kg

DRUGS (33)
  1. METOPROLOL TARTRATE [Concomitant]
     Dosage: 12.5 MILLIGRAM
     Route: 048
     Dates: start: 20110818
  2. BUMEX [Concomitant]
     Dosage: .5 MILLIGRAM
     Route: 048
     Dates: start: 20110716
  3. FILGRASTIM [Concomitant]
     Dosage: 300 MICROGRAM
     Route: 058
     Dates: start: 20110914
  4. ACYCLOVIR [Concomitant]
     Dosage: 400 MILLIGRAM
     Route: 048
     Dates: start: 20110818
  5. ALLOPURINOL [Concomitant]
     Dosage: 100 MILLIGRAM
     Route: 048
     Dates: start: 20110716
  6. BUMEX [Concomitant]
     Dosage: 1 MILLIGRAM
     Route: 041
     Dates: start: 20110926
  7. DOCUSATE [Concomitant]
     Dosage: 2 TABS
     Route: 048
     Dates: start: 20110823
  8. REVLIMID [Suspect]
     Dosage: 5-25MG
     Route: 048
  9. LUNESTA [Concomitant]
     Dosage: 2 MILLIGRAM
     Route: 048
     Dates: start: 20110517
  10. TYLENOL (CAPLET) [Concomitant]
     Indication: PAIN
     Dosage: 650 MILLIGRAM
     Route: 048
     Dates: start: 20110818
  11. LOPERAMIDE [Concomitant]
     Dosage: 2 MILLIGRAM
     Route: 048
     Dates: start: 20110923
  12. ALBUMIN (HUMAN) [Concomitant]
     Dosage: 12.5 GRAM
     Route: 041
     Dates: start: 20110926
  13. FAT EMULSION [Concomitant]
     Dosage: 13ML/HR
     Route: 041
     Dates: start: 20110930
  14. LORATADINE [Concomitant]
     Dosage: 5 MILLIGRAM
     Route: 048
     Dates: start: 20110916
  15. IDARUBICIN HCL [Suspect]
     Dosage: 12 MILLIGRAM/SQ. METER
     Route: 065
  16. CYTARABINE [Suspect]
     Dosage: 100 MILLIGRAM/SQ. METER
     Route: 065
  17. MAGNESIUM OXIDE [Concomitant]
     Dosage: 500 MILLIGRAM
     Route: 048
     Dates: start: 20110823
  18. METOPROLOL TARTRATE [Concomitant]
     Dosage: 5 MILLIGRAM
     Route: 041
     Dates: start: 20110922
  19. CLARINEX [Concomitant]
     Dosage: 5 MILLIGRAM
     Route: 048
     Dates: start: 20110823
  20. HYDROCORTISONE [Concomitant]
     Dosage: 50 MILLIGRAM
     Route: 041
     Dates: start: 20110927
  21. REGULAR INSULIN [Concomitant]
     Dosage: SLIDING SCALE
     Route: 058
     Dates: start: 20110921
  22. DEXTROSE [Concomitant]
     Indication: BLOOD GLUCOSE
     Dosage: 50 PERCENT
     Route: 041
     Dates: start: 20110921
  23. PIPERACILLIN AND TAZOBACTAM [Concomitant]
     Dosage: 2.25 GRAM
     Route: 041
     Dates: start: 20110921
  24. POTASSIUM CHLORIDE [Concomitant]
     Dosage: 20 MILLIEQUIVALENTS
     Route: 041
     Dates: start: 20110930
  25. FLUTICASONE FUROATE [Concomitant]
     Dosage: 2 PUFFS
     Route: 065
     Dates: start: 20110517
  26. REVLIMID [Suspect]
     Dosage: 20 MILLIGRAM
     Route: 048
     Dates: start: 20110817, end: 20110830
  27. NEXIUM [Concomitant]
     Dosage: 40 MILLIGRAM
     Route: 048
     Dates: start: 20110517
  28. TPN [Concomitant]
     Dosage: 40ML/HR
     Route: 041
     Dates: start: 20110930
  29. HYDROXYZINE [Concomitant]
     Dosage: 25 MILLIGRAM
     Route: 048
     Dates: start: 20110601
  30. SIMETHICONE [Concomitant]
     Dosage: 80 MILLIGRAM
     Route: 048
     Dates: start: 20110716
  31. SIMETHICONE [Concomitant]
     Route: 048
  32. VESICARE [Concomitant]
     Dosage: 5 MILLIGRAM
     Route: 048
     Dates: start: 20110517
  33. PANTOPRAZOLE [Concomitant]
     Dosage: 40 MILLIGRAM
     Route: 041
     Dates: start: 20110921

REACTIONS (4)
  - PNEUMONIA [None]
  - PSEUDOMONAL SEPSIS [None]
  - THROMBOCYTOPENIA [None]
  - NEUTROPENIA [None]
